FAERS Safety Report 12473819 (Version 1)
Quarter: 2016Q2

REPORT INFORMATION
  Report Type: Spontaneous
  Country: CA (occurrence: CA)
  Receive Date: 20160616
  Receipt Date: 20160616
  Transmission Date: 20160815
  Serious: Yes (Disabling)
  Sender: FDA-Public Use
  Company Number: CA-ASTRAZENECA-2016SE62026

PATIENT
  Age: 60 Year
  Sex: Male

DRUGS (3)
  1. ATACAND PLUS [Suspect]
     Active Substance: CANDESARTAN CILEXETIL\HYDROCHLOROTHIAZIDE
     Indication: CEREBROVASCULAR ACCIDENT PROPHYLAXIS
     Dosage: 12.5MG UNKNOWN
     Route: 048
  2. ASA [Interacting]
     Active Substance: ASPIRIN
     Dosage: 975
  3. XALATAN [Interacting]
     Active Substance: LATANOPROST

REACTIONS (3)
  - Myalgia [Recovered/Resolved]
  - Inflammation [Recovered/Resolved]
  - Drug interaction [Recovered/Resolved]
